FAERS Safety Report 8292754-1 (Version None)
Quarter: 2012Q2

REPORT INFORMATION
  Report Type: 
  Country: None (occurrence: None)
  Receive Date: 20120417
  Receipt Date: 20120217
  Transmission Date: 20120825
  Serious: No
  Sender: FDA-Public Use
  Company Number: US-ASTRAZENECA-2011SE72601

PATIENT
  Age: 42 Year
  Sex: Male

DRUGS (6)
  1. NEXIUM [Suspect]
     Route: 048
  2. CALCIUM CARBONATE [Concomitant]
  3. ACID CONTROL COMPLETE [Concomitant]
  4. RANITIDINE [Concomitant]
  5. PRILOSEC [Suspect]
     Route: 048
  6. PREVACID [Concomitant]

REACTIONS (4)
  - PRESCRIPTION FORM TAMPERING [None]
  - DRUG INEFFECTIVE [None]
  - DYSPEPSIA [None]
  - INAPPROPRIATE SCHEDULE OF DRUG ADMINISTRATION [None]
